FAERS Safety Report 6527291-5 (Version None)
Quarter: 2010Q1

REPORT INFORMATION
  Report Type: 
  Country: None (occurrence: None)
  Receive Date: 20100105
  Receipt Date: 20090327
  Transmission Date: 20100710
  Serious: No
  Sender: FDA-Public Use
  Company Number: US-TYCO HEALTHCARE/MALLINCKRODT-T200900791

PATIENT

DRUGS (1)
  1. OPTIMARK [Suspect]
     Dosage: UNK
     Route: 042

REACTIONS (1)
  - INJECTION SITE INJURY [None]
